FAERS Safety Report 21975043 (Version 1)
Quarter: 2023Q1

REPORT INFORMATION
  Report Type: Spontaneous
  Country: JP (occurrence: JP)
  Receive Date: 20230209
  Receipt Date: 20230209
  Transmission Date: 20230418
  Serious: Yes (Other)
  Sender: FDA-Public Use
  Company Number: JP-SAKK-01481993

PATIENT
  Sex: Female

DRUGS (3)
  1. SOLIQUA 100/33 [Suspect]
     Active Substance: INSULIN GLARGINE\LIXISENATIDE
     Indication: Product used for unknown indication
     Dosage: 14 DOSES, QD
     Route: 058
  2. SOLIQUA 100/33 [Suspect]
     Active Substance: INSULIN GLARGINE\LIXISENATIDE
     Dosage: 16 UNK, QD
     Route: 058
     Dates: start: 202301
  3. SOLIQUA 100/33 [Suspect]
     Active Substance: INSULIN GLARGINE\LIXISENATIDE
     Dosage: 14 DOSES, QD
     Route: 058
     Dates: start: 20230205

REACTIONS (1)
  - Sudden hearing loss [Unknown]

NARRATIVE: CASE EVENT DATE: 20230101
